FAERS Safety Report 13517208 (Version 10)
Quarter: 2017Q4

REPORT INFORMATION
  Report Type: Spontaneous
  Country: US (occurrence: US)
  Receive Date: 20170505
  Receipt Date: 20171023
  Transmission Date: 20180320
  Serious: Yes (Congenital Anomaly, Other)
  Sender: FDA-Public Use
  Company Number: PHEH2017US013402

PATIENT
  Sex: Female

DRUGS (4)
  1. ZOFRAN [Suspect]
     Active Substance: ONDANSETRON HYDROCHLORIDE
     Indication: FOETAL EXPOSURE DURING PREGNANCY
     Dosage: MOTHER^S DOSE: 8 MG, QD AND 4 MG, QD
     Route: 064
  2. ONDANSETRON [Suspect]
     Active Substance: ONDANSETRON
     Indication: FOETAL EXPOSURE DURING PREGNANCY
     Route: 064
  3. ONDANSETRON [Suspect]
     Active Substance: ONDANSETRON
     Indication: FOETAL EXPOSURE DURING PREGNANCY
     Route: 064
  4. ZOFRAN [Suspect]
     Active Substance: ONDANSETRON HYDROCHLORIDE
     Indication: FOETAL EXPOSURE DURING PREGNANCY
     Dosage: MOTHER^S DOSE: 2 ML, QD
     Route: 064

REACTIONS (18)
  - Fever neonatal [Unknown]
  - Nasal congestion [Unknown]
  - Viral infection [Unknown]
  - Foetal exposure during pregnancy [Unknown]
  - Bronchitis [Unknown]
  - Vascular malformation [Unknown]
  - Urinary tract infection [Unknown]
  - Congenital arterial malformation [Unknown]
  - Tracheobronchitis [Unknown]
  - Rhinorrhoea [Unknown]
  - Right aortic arch [Unknown]
  - Deafness [Unknown]
  - Injury [Unknown]
  - Cough [Unknown]
  - Wheezing [Unknown]
  - Hypoglycaemia neonatal [Unknown]
  - Respiratory syncytial virus bronchiolitis [Unknown]
  - Dyspnoea [Unknown]
